FAERS Safety Report 8409760 (Version 3)
Quarter: 2012Q4

REPORT INFORMATION
  Report Type: 
  Country: PT (occurrence: PT)
  Receive Date: 20120216
  Receipt Date: 20121226
  Transmission Date: 20130627
  Serious: Yes (Disabling, Other)
  Sender: FDA-Public Use
  Company Number: PT-BAYER-2011-097191

PATIENT
  Age: 43 Year
  Sex: Male

DRUGS (4)
  1. BETAFERON [Suspect]
     Indication: SECONDARY PROGRESSIVE MULTIPLE SCLEROSIS
     Dosage: 0.75 cc QOD
     Route: 058
     Dates: start: 20060426
  2. BETAFERON [Suspect]
     Indication: SECONDARY PROGRESSIVE MULTIPLE SCLEROSIS
     Dosage: 0.5 cc QOD
  3. BETAFERON [Suspect]
     Indication: SECONDARY PROGRESSIVE MULTIPLE SCLEROSIS
     Dosage: 6 miu, UNK
     Route: 058
     Dates: start: 201201
  4. METHOTREXATE [Concomitant]
     Indication: SPINAL PAIN
     Dosage: 2 tablets, Mon-Tues-wed
     Route: 048

REACTIONS (9)
  - Myalgia [Not Recovered/Not Resolved]
  - Muscle spasticity [Not Recovered/Not Resolved]
  - Multiple sclerosis relapse [None]
  - Underweight [Unknown]
  - Spinal pain [None]
  - Paresis [None]
  - Hypertonia [None]
  - Mobility decreased [None]
  - Influenza like illness [Not Recovered/Not Resolved]
